FAERS Safety Report 24877578 (Version 2)
Quarter: 2025Q1

REPORT INFORMATION
  Report Type: Spontaneous
  Country: US (occurrence: US)
  Receive Date: 20250123
  Receipt Date: 20250306
  Transmission Date: 20250408
  Serious: No
  Sender: MSN LABORATORIES PRIVATE LIMITED
  Company Number: US-MSNLABS-2025MSNSPO00096

PATIENT

DRUGS (2)
  1. OSELTAMIVIR [Suspect]
     Active Substance: OSELTAMIVIR
     Indication: Influenza
     Dosage: ONE CAPSULE OF MEDICATION IN THE MORNING AND ANOTHER CAPSULE IN THE EVENING IN A DAY
     Route: 048
     Dates: start: 20250113, end: 20250113
  2. Promethazine-DM [Concomitant]
     Indication: Product used for unknown indication
     Route: 065

REACTIONS (3)
  - Tremor [Recovered/Resolved]
  - Feeling abnormal [Recovered/Resolved]
  - Malaise [Recovered/Resolved]

NARRATIVE: CASE EVENT DATE: 20250113
